FAERS Safety Report 5328516-4 (Version None)
Quarter: 2007Q2

REPORT INFORMATION
  Report Type: 
  Country: None (occurrence: None)
  Receive Date: 20070518
  Receipt Date: 20070509
  Transmission Date: 20071010
  Serious: Yes (Hospitalization)
  Sender: FDA-Public Use
  Company Number: US-AMGEN-US222891

PATIENT
  Sex: Male
  Weight: 99.9 kg

DRUGS (1)
  1. ARANESP [Suspect]
     Indication: RENAL FAILURE CHRONIC
     Route: 065
     Dates: start: 20060101

REACTIONS (1)
  - HOSPITALISATION [None]
